FAERS Safety Report 18917837 (Version 3)
Quarter: 2023Q2

REPORT INFORMATION
  Report Type: Report from Study
  Country: US (occurrence: US)
  Receive Date: 20210219
  Receipt Date: 20230606
  Transmission Date: 20230721
  Serious: Yes (Hospitalization)
  Sender: FDA-Public Use
  Company Number: US-BAUSCH-BL-2021-005687

PATIENT
  Age: 64 Year
  Sex: Female
  Weight: 63.56 kg

DRUGS (7)
  1. XIFAXAN [Suspect]
     Active Substance: RIFAXIMIN
     Indication: Liver disorder
     Route: 048
     Dates: start: 201501, end: 202102
  2. XIFAXAN [Suspect]
     Active Substance: RIFAXIMIN
     Dosage: REDUCED DOSAGE ON 05/FEB/2021 OR 08/FEB/2021
     Route: 048
     Dates: start: 202102
  3. XIFAXAN [Suspect]
     Active Substance: RIFAXIMIN
     Dosage: DOSE: 30 DAYS
     Route: 048
     Dates: end: 2023
  4. POTASSIUM [Concomitant]
     Active Substance: POTASSIUM
     Indication: Product used for unknown indication
     Route: 048
  5. GLIPIZIDE [Concomitant]
     Active Substance: GLIPIZIDE
     Indication: Product used for unknown indication
     Route: 048
  6. URSODIOL [Concomitant]
     Active Substance: URSODIOL
     Indication: Product used for unknown indication
     Route: 048
  7. MAGNESIUM [Concomitant]
     Active Substance: MAGNESIUM
     Indication: Product used for unknown indication
     Route: 048

REACTIONS (9)
  - Cystitis [Unknown]
  - Adverse event [Unknown]
  - Encephalitis [Unknown]
  - Malaise [Unknown]
  - Hallucination [Unknown]
  - Memory impairment [Not Recovered/Not Resolved]
  - Hypersomnia [Unknown]
  - Product use issue [Unknown]
  - Intentional product use issue [Unknown]

NARRATIVE: CASE EVENT DATE: 20210101
